FAERS Safety Report 6516975-0 (Version None)
Quarter: 2009Q4

REPORT INFORMATION
  Report Type: 
  Country: None (occurrence: None)
  Receive Date: 20091223
  Receipt Date: 20091222
  Transmission Date: 20100525
  Serious: Yes (Hospitalization)
  Sender: FDA-Public Use
  Company Number: FR-WYE-G05200709

PATIENT
  Sex: Female

DRUGS (7)
  1. TAZOCILLINE [Suspect]
     Indication: INFECTION
     Dosage: UNKNOWN
     Route: 042
     Dates: start: 20091013, end: 20090101
  2. TAZOCILLINE [Suspect]
     Dosage: UNKNOWN
     Route: 042
     Dates: start: 20091109
  3. DOLIPRANE [Concomitant]
     Dosage: UNKNOWN
  4. PIPERACILLIN SODIUM/TAZOBACTAM SODIUM [Suspect]
     Dosage: UNKNOWN
     Dates: start: 20091107, end: 20091108
  5. LOVENOX [Concomitant]
     Dosage: UNKNOWN
  6. TAVANIC [Suspect]
     Indication: INFECTION
     Dosage: UNKNOWN
     Dates: start: 20091013
  7. VANCOMYCIN [Suspect]
     Indication: INFECTION
     Dosage: UNKNOWN
     Dates: start: 20091013, end: 20090101

REACTIONS (2)
  - INFECTION [None]
  - URTICARIA [None]
